FAERS Safety Report 19963176 (Version 3)
Quarter: 2022Q1

REPORT INFORMATION
  Report Type: Spontaneous
  Country: US (occurrence: US)
  Receive Date: 20211018
  Receipt Date: 20220209
  Transmission Date: 20220423
  Serious: Yes (Hospitalization, Other)
  Sender: FDA-Public Use
  Company Number: US-BRISTOL-MYERS SQUIBB COMPANY-BMS-2021-105543

PATIENT
  Age: 84 Year
  Sex: Male

DRUGS (2)
  1. ELIQUIS [Suspect]
     Active Substance: APIXABAN
     Indication: Pulmonary embolism
     Dosage: 5 MILLIGRAM, BID
     Route: 048
     Dates: start: 202110, end: 20211023
  2. PREDNISONE [Concomitant]
     Active Substance: PREDNISONE
     Indication: Neoplasm malignant
     Dosage: UNK
     Route: 065

REACTIONS (4)
  - Lower gastrointestinal haemorrhage [Recovering/Resolving]
  - Chest pain [Recovering/Resolving]
  - Weight increased [Unknown]
  - Abdominal distension [Unknown]

NARRATIVE: CASE EVENT DATE: 20211023
